FAERS Safety Report 5782435-8 (Version None)
Quarter: 2008Q2

REPORT INFORMATION
  Report Type: 
  Country: None (occurrence: None)
  Receive Date: 20080623
  Receipt Date: 20080130
  Transmission Date: 20081010
  Serious: Yes (Hospitalization, Other)
  Sender: FDA-Public Use
  Company Number: US-AMGEN-QUU263069

PATIENT
  Sex: Male

DRUGS (4)
  1. ARANESP [Suspect]
     Indication: RENAL FAILURE CHRONIC
  2. PROTONIX [Concomitant]
  3. FLOMAX [Concomitant]
  4. ZOCOR [Concomitant]

REACTIONS (2)
  - ABDOMINAL PAIN [None]
  - PNEUMONIA [None]
